FAERS Safety Report 7644099-8 (Version None)
Quarter: 2011Q3

REPORT INFORMATION
  Report Type: 
  Country: None (occurrence: None)
  Receive Date: 20110729
  Receipt Date: 20110720
  Transmission Date: 20111222
  Serious: Yes (Hospitalization)
  Sender: FDA-Public Use
  Company Number: US-JNJFOC-20110606087

PATIENT
  Sex: Female
  Weight: 120.2 kg

DRUGS (21)
  1. TRAZODONE HCL [Concomitant]
     Dates: start: 20110322
  2. RISPERDAL CONSTA [Suspect]
     Route: 030
     Dates: start: 20080723
  3. ZOCOR [Concomitant]
     Indication: HYPERCHOLESTEROLAEMIA
  4. NALTREXONE HYDROCHLORIDE [Concomitant]
     Indication: ALCOHOL ABUSE
  5. RISPERDAL CONSTA [Suspect]
     Route: 030
     Dates: start: 20110405
  6. TYLENOL-500 [Concomitant]
     Indication: ARTHRALGIA
  7. LISINOPRIL [Concomitant]
     Indication: HYPERTENSION
  8. TRAZODONE HCL [Concomitant]
     Indication: INSOMNIA
     Dates: start: 20110405
  9. RISPERDAL CONSTA [Suspect]
     Indication: SCHIZOPHRENIA, PARANOID TYPE
     Route: 030
     Dates: start: 20110322
  10. RISPERDAL CONSTA [Suspect]
     Route: 030
     Dates: start: 20081119
  11. HYDROCHLOROTHIAZIDE [Concomitant]
     Indication: HYPERTENSION
  12. VISTARIL [Concomitant]
     Indication: ALCOHOL ABUSE
  13. HALDOL [Concomitant]
     Dates: start: 20110405
  14. LUVOX [Concomitant]
     Indication: OBSESSIVE-COMPULSIVE DISORDER
  15. LANTUS [Concomitant]
     Indication: DIABETES MELLITUS
  16. HALDOL [Concomitant]
     Indication: SCHIZOPHRENIA, PARANOID TYPE
     Dates: start: 20110322
  17. HYDROCHLOROTHIAZIDE [Concomitant]
  18. IBUPROFEN [Concomitant]
     Indication: ARTHRALGIA
  19. DEPAKOTE [Concomitant]
     Indication: MOOD SWINGS
     Dates: start: 20110405
  20. DEPAKOTE [Concomitant]
     Dates: start: 20110322
  21. METFORMIN HCL [Concomitant]
     Indication: TYPE 2 DIABETES MELLITUS

REACTIONS (3)
  - SUICIDAL IDEATION [None]
  - HOMICIDAL IDEATION [None]
  - NIGHTMARE [None]
